FAERS Safety Report 15616890 (Version 4)
Quarter: 2019Q1

REPORT INFORMATION
  Report Type: Spontaneous
  Country: JP (occurrence: JP)
  Receive Date: 20181114
  Receipt Date: 20190314
  Transmission Date: 20190417
  Serious: Yes (Hospitalization, Other)
  Sender: FDA-Public Use
  Company Number: JP-009507513-1811JPN000926J

PATIENT
  Age: 66 Year
  Sex: Male
  Weight: 62 kg

DRUGS (1)
  1. JANUVIA [Suspect]
     Active Substance: SITAGLIPTIN PHOSPHATE
     Indication: TYPE 2 DIABETES MELLITUS
     Dosage: 50 MILLIGRAM, QD
     Route: 048
     Dates: start: 20180627, end: 20181113

REACTIONS (1)
  - Pemphigus [Unknown]

NARRATIVE: CASE EVENT DATE: 20180815
